FAERS Safety Report 9405654 (Version 1)
Quarter: 2013Q3

REPORT INFORMATION
  Report Type: Spontaneous
  Country: FR (occurrence: FR)
  Receive Date: 20130717
  Receipt Date: 20130717
  Transmission Date: 20140515
  Serious: Yes (Other)
  Sender: FDA-Public Use
  Company Number: FR-GLAXOSMITHKLINE-B0907722A

PATIENT
  Age: 28 Year
  Sex: Female

DRUGS (2)
  1. NIQUITIN [Suspect]
     Indication: EX-TOBACCO USER
     Route: 062
     Dates: start: 201108, end: 201108
  2. NICORETTE [Suspect]
     Indication: EX-TOBACCO USER
     Route: 002
     Dates: start: 201108, end: 201108

REACTIONS (6)
  - Angioedema [Recovered/Resolved]
  - Face oedema [Recovered/Resolved]
  - Localised oedema [Recovered/Resolved]
  - Dyspnoea [Recovered/Resolved]
  - Hypotension [Recovered/Resolved]
  - Urticaria chronic [Not Recovered/Not Resolved]
